FAERS Safety Report 7000672-1 (Version None)
Quarter: 2010Q3

REPORT INFORMATION
  Report Type: 
  Country: None (occurrence: None)
  Receive Date: 20100920
  Receipt Date: 20100129
  Transmission Date: 20110219
  Serious: No
  Sender: FDA-Public Use
  Company Number: US-ASTRAZENECA-2010SE04249

PATIENT
  Age: 48 Year
  Sex: Male
  Weight: 65.8 kg

DRUGS (5)
  1. SEROQUEL XR [Suspect]
     Indication: BIPOLAR DISORDER
     Route: 048
     Dates: start: 20090101
  2. SEROQUEL XR [Suspect]
     Route: 048
  3. SEROQUEL XR [Suspect]
     Route: 048
  4. KLONOPIN [Concomitant]
  5. PROZAC [Concomitant]

REACTIONS (3)
  - DYSARTHRIA [None]
  - DYSPNOEA [None]
  - HANGOVER [None]
